FAERS Safety Report 6448366-5 (Version None)
Quarter: 2009Q4

REPORT INFORMATION
  Report Type: 
  Country: None (occurrence: None)
  Receive Date: 20091120
  Receipt Date: 20091107
  Transmission Date: 20100525
  Serious: Yes (Hospitalization)
  Sender: FDA-Public Use
  Company Number: PHHY2009IT48810

PATIENT
  Sex: Male

DRUGS (2)
  1. CERTICAN [Suspect]
     Dosage: 0.75 MG, BID
     Route: 048
  2. NEORAL [Suspect]
     Dosage: 50 MG, BID
     Route: 048

REACTIONS (2)
  - BLOOD CREATININE INCREASED [None]
  - KIDNEY TRANSPLANT REJECTION [None]
